FAERS Safety Report 12653304 (Version 1)
Quarter: 2016Q3

REPORT INFORMATION
  Report Type: Spontaneous
  Country: US (occurrence: US)
  Receive Date: 20160815
  Receipt Date: 20160815
  Transmission Date: 20161109
  Serious: Yes (Hospitalization)
  Sender: FDA-Public Use
  Company Number: US-PURDUE PHARMA-USA-2016-0130312

PATIENT
  Age: 69 Year
  Sex: Female
  Weight: 104.31 kg

DRUGS (2)
  1. OXYCONTIN [Suspect]
     Active Substance: OXYCODONE HYDROCHLORIDE
     Indication: PAIN
     Dosage: 40 MG, BID
     Route: 048
     Dates: start: 20160407, end: 20160412
  2. OXYCODONE HCL CR TABLETS (SIMILAR TO NDA 22-272) [Suspect]
     Active Substance: OXYCODONE HYDROCHLORIDE
     Indication: PAIN
     Dosage: 10 MG, Q6- 8H PRN
     Route: 048
     Dates: start: 20160407, end: 20160412

REACTIONS (6)
  - Disorientation [Recovered/Resolved]
  - Mental status changes [Recovered/Resolved]
  - Respiratory rate decreased [Recovered/Resolved]
  - Overdose [Recovered/Resolved]
  - Hypoxia [Recovered/Resolved]
  - Unevaluable event [Recovered/Resolved]

NARRATIVE: CASE EVENT DATE: 20160412
